FAERS Safety Report 4567681-3 (Version None)
Quarter: 2005Q1

REPORT INFORMATION
  Report Type: 
  Country: None (occurrence: None)
  Receive Date: 20050202
  Receipt Date: 20050120
  Transmission Date: 20050727
  Serious: Yes (Hospitalization)
  Sender: FDA-Public Use
  Company Number: US-JNJFOC-20050105803

PATIENT
  Sex: Male
  Weight: 108.86 kg

DRUGS (7)
  1. INFLIXIMAB [Suspect]
     Indication: RHEUMATOID ARTHRITIS
     Route: 042
  2. CRESTOR [Concomitant]
  3. PREDNISONE [Concomitant]
     Dosage: 15-20 MG
  4. FOLIC ACID [Concomitant]
  5. POTASSIUM CHLORIDE [Concomitant]
  6. CALCIUM GLUCONATE [Concomitant]
  7. BUPROPION HCL [Concomitant]

REACTIONS (3)
  - DEEP VEIN THROMBOSIS [None]
  - PULMONARY EMBOLISM [None]
  - PULMONARY INFARCTION [None]
